FAERS Safety Report 15255475 (Version 1)
Quarter: 2018Q3

REPORT INFORMATION
  Report Type: Spontaneous
  Country: US (occurrence: US)
  Receive Date: 20180808
  Receipt Date: 20180808
  Transmission Date: 20181010
  Serious: No
  Sender: FDA-Public Use
  Company Number: US-PFIZER INC-2018211497

PATIENT
  Age: 60 Year
  Sex: Female

DRUGS (2)
  1. XELJANZ XR [Suspect]
     Active Substance: TOFACITINIB CITRATE
     Dosage: 11 MG, 1X/DAY
  2. CEFDINIR. [Suspect]
     Active Substance: CEFDINIR
     Dosage: 300 MG, UNK

REACTIONS (8)
  - Drug ineffective [Unknown]
  - Muscular weakness [Unknown]
  - Dry mouth [Unknown]
  - Arthralgia [Unknown]
  - Fatigue [Recovered/Resolved]
  - Joint stiffness [Unknown]
  - Dry eye [Unknown]
  - Urine odour abnormal [Unknown]
